FAERS Safety Report 17609558 (Version 1)
Quarter: 2020Q2

REPORT INFORMATION
  Report Type: Spontaneous
  Country: ES (occurrence: ES)
  Receive Date: 20200401
  Receipt Date: 20200401
  Transmission Date: 20200713
  Serious: Yes (Life-Threatening, Hospitalization)
  Sender: FDA-Public Use
  Company Number: ES-PFIZER INC-2020132855

PATIENT
  Age: 11 Month
  Sex: Male
  Weight: 10 kg

DRUGS (3)
  1. LEVETIRACETAM. [Suspect]
     Active Substance: LEVETIRACETAM
     Indication: SEIZURE PROPHYLAXIS
     Dosage: 300 MG, 2X/DAY (EVERY 12 HOURS)
     Route: 042
     Dates: start: 20191213
  2. TEICOPLANIN [Suspect]
     Active Substance: TEICOPLANIN
     Indication: PROPHYLAXIS
     Dosage: 150 MG, 1X/DAY (EVERY 24 HOURS)
     Route: 042
     Dates: start: 20191227, end: 20191229
  3. VALPROATE SODIUM. [Suspect]
     Active Substance: VALPROATE SODIUM
     Indication: SEIZURE PROPHYLAXIS
     Dosage: 200 MG, 3X/DAY (EVERY 8 HOURS)
     Route: 042
     Dates: start: 20191215, end: 20191230

REACTIONS (4)
  - Thrombocytopenia [Recovered/Resolved]
  - Product use issue [Unknown]
  - Drug reaction with eosinophilia and systemic symptoms [Recovered/Resolved]
  - Off label use [Unknown]

NARRATIVE: CASE EVENT DATE: 20191213
